FAERS Safety Report 19932721 (Version 2)
Quarter: 2021Q4

REPORT INFORMATION
  Report Type: Spontaneous
  Country: CN (occurrence: CN)
  Receive Date: 20211008
  Receipt Date: 20211115
  Transmission Date: 20220303
  Serious: Yes (Life-Threatening, Hospitalization, Other)
  Sender: FDA-Public Use
  Company Number: CN-ACCORD-240428

PATIENT
  Age: 48 Year
  Sex: Female

DRUGS (1)
  1. METHOTREXATE [Suspect]
     Active Substance: METHOTREXATE
     Indication: Rheumatoid arthritis
     Dosage: ONCE PER WEEK FOR 2 WEEKS

REACTIONS (9)
  - Oropharyngeal pain [Recovered/Resolved]
  - Hypophagia [Recovering/Resolving]
  - Conjunctival pallor [Recovering/Resolving]
  - Stomatitis [Recovered/Resolved]
  - Nausea [Recovered/Resolved]
  - Vomiting [Recovered/Resolved]
  - Agranulocytosis [Recovered/Resolved]
  - Pneumonia [Recovered/Resolved]
  - Pancytopenia [Recovered/Resolved]
